FAERS Safety Report 12814285 (Version 1)
Quarter: 2016Q4

REPORT INFORMATION
  Report Type: Report from Study
  Country: US (occurrence: US)
  Receive Date: 20161006
  Receipt Date: 20161006
  Transmission Date: 20170207
  Serious: No
  Sender: FDA-Public Use
  Company Number: US-AMGEN-USASL2016087349

PATIENT
  Age: 69 Year
  Sex: Female

DRUGS (1)
  1. PROLIA [Suspect]
     Active Substance: DENOSUMAB
     Indication: OSTEOPOROSIS
     Dosage: UNK
     Route: 065
     Dates: start: 20160413

REACTIONS (10)
  - Tension headache [Unknown]
  - Hypoaesthesia [Unknown]
  - Balance disorder [Unknown]
  - Feeling abnormal [Unknown]
  - Head discomfort [Unknown]
  - Paraesthesia [Unknown]
  - Fear [Unknown]
  - Dysuria [Unknown]
  - Musculoskeletal stiffness [Unknown]
  - Eating disorder [Unknown]
